FAERS Safety Report 4739576-3 (Version None)
Quarter: 2005Q3

REPORT INFORMATION
  Report Type: 
  Country: None (occurrence: None)
  Receive Date: 20050810
  Receipt Date: 20050405
  Transmission Date: 20060218
  Serious: No
  Sender: FDA-Public Use
  Company Number: US-GLAXOSMITHKLINE-A0552841A

PATIENT
  Age: 51 Year
  Sex: Male

DRUGS (2)
  1. PAXIL [Suspect]
     Indication: DEPRESSION
     Dosage: 15MG THREE TIMES PER DAY
     Route: 048
     Dates: start: 20050407
  2. NO CONCURRENT MEDICATION [Concomitant]

REACTIONS (5)
  - ASTHENIA [None]
  - DIARRHOEA [None]
  - DRUG INEFFECTIVE [None]
  - GASTRIC DISORDER [None]
  - SOCIAL AVOIDANT BEHAVIOUR [None]
